FAERS Safety Report 8605123 (Version 2)
Quarter: 2012Q4

REPORT INFORMATION
  Report Type: 
  Country: FR (occurrence: FR)
  Receive Date: 20120608
  Receipt Date: 20121025
  Transmission Date: 20130627
  Serious: Yes (Other)
  Sender: FDA-Public Use
  Company Number: FR-UCBSA-058448

PATIENT
  Age: 6 Month

DRUGS (2)
  1. KEPPRA [Suspect]
     Route: 048
  2. MOTILIUM [Concomitant]

REACTIONS (1)
  - Neutropenia [Not Recovered/Not Resolved]
